FAERS Safety Report 16725770 (Version 5)
Quarter: 2019Q4

REPORT INFORMATION
  Report Type: Spontaneous
  Country: IE (occurrence: US)
  Receive Date: 20190821
  Receipt Date: 20191226
  Transmission Date: 20200122
  Serious: Yes (Other)
  Sender: FDA-Public Use
  Company Number: US-ASCEND THERAPEUTICS US, LLC-2073480

PATIENT
  Age: 51 Year
  Sex: Female

DRUGS (6)
  1. ASPIRIN. [Suspect]
     Active Substance: ASPIRIN
  2. PROGESTERONE. [Suspect]
     Active Substance: PROGESTERONE
  3. ESTRADIOL. [Suspect]
     Active Substance: ESTRADIOL
  4. ESTROGEL [Suspect]
     Active Substance: ESTRADIOL
     Indication: PRODUCT USED FOR UNKNOWN INDICATION
  5. INNOHEP [Suspect]
     Active Substance: TINZAPARIN SODIUM
  6. TINZAPARIN (TINZAPARIN) [Concomitant]

REACTIONS (3)
  - Erythema nodosum [Recovering/Resolving]
  - Abortion spontaneous [Unknown]
  - Maternal exposure during pregnancy [None]
